FAERS Safety Report 15436851 (Version 1)
Quarter: 2018Q3

REPORT INFORMATION
  Report Type: Spontaneous
  Country: US (occurrence: US)
  Receive Date: 20180927
  Receipt Date: 20180927
  Transmission Date: 20181010
  Serious: Yes (Hospitalization)
  Sender: FDA-Public Use
  Company Number: US-B.I. PHARMACEUTICALS,INC./RIDGEFIELD-2018-BI-047333

PATIENT
  Sex: Male

DRUGS (2)
  1. OFEV [Suspect]
     Active Substance: NINTEDANIB
     Indication: PULMONARY FIBROSIS
     Route: 048
     Dates: start: 2016
  2. ESBRIET [Concomitant]
     Active Substance: PIRFENIDONE
     Indication: IDIOPATHIC PULMONARY FIBROSIS
     Dosage: FORM STRENGTH: UNKNOWN MG;
     Route: 048

REACTIONS (3)
  - Pneumonia [Recovered/Resolved]
  - Platelet count decreased [Unknown]
  - Idiopathic pulmonary fibrosis [Unknown]

NARRATIVE: CASE EVENT DATE: 2017
